FAERS Safety Report 10058317 (Version 2)
Quarter: 2014Q2

REPORT INFORMATION
  Report Type: Spontaneous
  Country: IT (occurrence: IT)
  Receive Date: 20140404
  Receipt Date: 20140528
  Transmission Date: 20141212
  Serious: Yes (Life-Threatening, Hospitalization)
  Sender: FDA-Public Use
  Company Number: IT-SA-2014SA041163

PATIENT
  Age: 64 Year
  Sex: Male
  Weight: 110 kg

DRUGS (10)
  1. RAMIPRIL [Suspect]
     Indication: MYOCARDIAL ISCHAEMIA
     Route: 065
     Dates: start: 20130701, end: 20140206
  2. RAMIPRIL [Interacting]
     Indication: MYOCARDIAL ISCHAEMIA
     Route: 065
     Dates: start: 20130701, end: 20140206
  3. FUROSEMIDE [Interacting]
     Indication: MYOCARDIAL ISCHAEMIA
     Dosage: DOSE:1 UNIT(S)
     Route: 065
     Dates: start: 20130701, end: 20140206
  4. FUROSEMIDE [Interacting]
     Indication: MYOCARDIAL ISCHAEMIA
     Dosage: DOSE:1 UNIT(S)
     Route: 065
     Dates: start: 20130701, end: 20140206
  5. METFORMIN [Interacting]
     Indication: DIABETES MELLITUS
     Route: 048
     Dates: start: 20130110, end: 20140206
  6. COMPETACT [Interacting]
     Indication: DIABETES MELLITUS
     Dosage: DOSE:2 UNIT(S)
     Route: 048
     Dates: start: 20130701, end: 20140206
  7. DILATREND [Concomitant]
     Dosage: DOSE:1 UNIT(S)
     Route: 048
     Dates: start: 20130701, end: 20140206
  8. CARDIOASPIRIN [Concomitant]
     Dosage: DOSE:1 UNIT(S)
     Route: 048
     Dates: start: 20130701, end: 20140206
  9. LEVEMIR [Concomitant]
     Route: 058
  10. SIVASTIN [Concomitant]
     Dosage: DOSE:1 UNIT(S)
     Route: 048
     Dates: start: 20130701, end: 20140206

REACTIONS (3)
  - Lactic acidosis [Recovering/Resolving]
  - Drug interaction [Recovering/Resolving]
  - Renal failure acute [Recovering/Resolving]
